FAERS Safety Report 15193135 (Version 1)
Quarter: 2018Q3

REPORT INFORMATION
  Report Type: Spontaneous
  Country: ES (occurrence: ES)
  Receive Date: 20180725
  Receipt Date: 20180725
  Transmission Date: 20181010
  Serious: Yes (Hospitalization)
  Sender: FDA-Public Use
  Company Number: ES-TEVA-2018-ES-929179

PATIENT
  Age: 43 Year
  Sex: Male

DRUGS (4)
  1. CIPROFLOXACINO [Suspect]
     Active Substance: CIPROFLOXACIN HYDROCHLORIDE
     Route: 065
     Dates: start: 201709, end: 20171013
  2. EVEROLIMUS. [Interacting]
     Active Substance: EVEROLIMUS
     Route: 065
     Dates: start: 20170717
  3. VALCYTE [Interacting]
     Active Substance: VALGANCICLOVIR HYDROCHLORIDE
     Route: 048
     Dates: start: 2017, end: 2017
  4. MYFORTIC [Interacting]
     Active Substance: MYCOPHENOLATE SODIUM
     Route: 065
     Dates: start: 20170725

REACTIONS (3)
  - Leukopenia [Recovering/Resolving]
  - Drug interaction [Recovering/Resolving]
  - Neutropenia [Recovering/Resolving]

NARRATIVE: CASE EVENT DATE: 20170925
